FAERS Safety Report 6416157-7 (Version None)
Quarter: 2009Q4

REPORT INFORMATION
  Report Type: 
  Country: None (occurrence: None)
  Receive Date: 20091023
  Receipt Date: 20091008
  Transmission Date: 20100525
  Serious: Yes (Other)
  Sender: FDA-Public Use
  Company Number: 8053437

PATIENT
  Age: 16 Year
  Sex: Female

DRUGS (1)
  1. CIMZIA [Suspect]
     Indication: CROHN'S DISEASE
     Dosage: 400 MG /M SC
     Route: 058
     Dates: start: 20090506

REACTIONS (1)
  - STAPHYLOCOCCAL INFECTION [None]
